FAERS Safety Report 18980461 (Version 1)
Quarter: 2021Q1

REPORT INFORMATION
  Report Type: Spontaneous
  Country: US (occurrence: US)
  Receive Date: 20210305
  Receipt Date: 20210305
  Transmission Date: 20210420
  Serious: No
  Sender: FDA-Public Use
  Company Number: None

PATIENT
  Age: 59 Year
  Sex: Female
  Weight: 102.06 kg

DRUGS (1)
  1. ENBREL [Suspect]
     Active Substance: ETANERCEPT
     Indication: RHEUMATOID ARTHRITIS
     Dosage: AS DIRECTED
     Route: 058
     Dates: start: 202012

REACTIONS (8)
  - Fatigue [None]
  - Abdominal pain [None]
  - Swelling [None]
  - Asthenia [None]
  - Cardiac flutter [None]
  - Pancreatic disorder [None]
  - Dyspnoea exertional [None]
  - Nausea [None]
